FAERS Safety Report 8543726-0 (Version None)
Quarter: 2012Q3

REPORT INFORMATION
  Report Type: 
  Country: None (occurrence: None)
  Receive Date: 20120727
  Receipt Date: 20120720
  Transmission Date: 20120928
  Serious: Yes (Other)
  Sender: FDA-Public Use
  Company Number: US-ELI_LILLY_AND_COMPANY-US201207006999

PATIENT
  Age: 68 Year
  Sex: Female

DRUGS (15)
  1. ATENOLOL [Concomitant]
     Dosage: 50 MG, UNKNOWN
  2. FOLIC ACID [Concomitant]
     Dosage: 1 MG, UNK
  3. VITAMIN D [Concomitant]
     Dosage: UNK, UNKNOWN
  4. VESICARE [Concomitant]
     Dosage: 5 MG, UNKNOWN
  5. ASPIRIN [Concomitant]
     Dosage: 81 MG, UNK
  6. SIMVASTATIN [Concomitant]
     Dosage: 40 MG, UNKNOWN
  7. NITRO                              /00003201/ [Concomitant]
     Dosage: 0.4 MG, UNKNOWN
  8. PANTOPRAZOLE [Concomitant]
     Dosage: 40 MG, UNKNOWN
  9. ZOLOFT [Concomitant]
     Dosage: 100 MG, UNK
  10. DICYCLOMINE [Concomitant]
     Dosage: 20 MG, UNKNOWN
  11. EFFIENT [Suspect]
     Dosage: 10 MG, QD
  12. BENICAR [Concomitant]
     Dosage: 40 MG, UNKNOWN
  13. CALCIUM [Concomitant]
     Dosage: UNK, UNKNOWN
  14. METFORMIN HYDROCHLORIDE [Concomitant]
     Dosage: 500 MG, UNKNOWN
  15. OMEPRAZOLE [Concomitant]
     Dosage: 40 MG, UNKNOWN

REACTIONS (1)
  - DEMENTIA [None]
